FAERS Safety Report 11976936 (Version 1)
Quarter: 2016Q1

REPORT INFORMATION
  Report Type: Spontaneous
  Country: US (occurrence: US)
  Receive Date: 20160129
  Receipt Date: 20160129
  Transmission Date: 20160526
  Serious: Yes (Other)
  Sender: FDA-Public Use
  Company Number: US-CIPLA LTD.-2016US00628

PATIENT

DRUGS (8)
  1. IMO-2055 [Suspect]
     Active Substance: INVESTIGATIONAL PRODUCT
     Indication: COLORECTAL CANCER
     Dosage: 0.32 MG/KG ONCE WEEKLY, EVERY 7 DAYS (I.E., DAYS 1 AND 8 OF EACH CYCLE)
     Route: 058
  2. CETUXIMAB [Suspect]
     Active Substance: CETUXIMAB
     Indication: COLORECTAL CANCER
     Dosage: 400 MG/M2 DAY 1 CYCLE 1
     Route: 042
  3. IRINOTECAN [Suspect]
     Active Substance: IRINOTECAN
     Indication: COLORECTAL CANCER
     Dosage: 180 MG/M2 ON DAY 1
     Route: 042
  4. FLUOROURACIL. [Suspect]
     Active Substance: FLUOROURACIL
     Indication: COLORECTAL CANCER
     Dosage: 400 MG/M2 ON DAY 1 AS INTRAVENOUS BOLUS
     Route: 040
  5. FLUOROURACIL. [Suspect]
     Active Substance: FLUOROURACIL
     Dosage: 2400 MG/M2 AS 46-H INFUSION
     Route: 042
  6. FOLINIC ACID [Suspect]
     Active Substance: LEUCOVORIN
     Indication: COLORECTAL CANCER
     Dosage: 400 MG/M2 RACEMIC, UNK
     Route: 042
  7. FOLINIC ACID [Suspect]
     Active Substance: LEUCOVORIN
     Dosage: 200 MG/M2 L-FORM, UNK
     Route: 042
  8. CETUXIMAB [Suspect]
     Active Substance: CETUXIMAB
     Dosage: 250 MG/M2 FOR SUBSEQUENT CYCLES
     Route: 042

REACTIONS (3)
  - Fatigue [Unknown]
  - Injection site reaction [Unknown]
  - Diarrhoea [Unknown]
